FAERS Safety Report 19264628 (Version 1)
Quarter: 2021Q2

REPORT INFORMATION
  Report Type: Report from Study
  Country: US (occurrence: US)
  Receive Date: 20210517
  Receipt Date: 20210517
  Transmission Date: 20210717
  Serious: Yes (Other)
  Sender: FDA-Public Use
  Company Number: US-GLAXOSMITHKLINE-US2021AMR102611

PATIENT
  Sex: Female

DRUGS (1)
  1. NIRAPARIB [Suspect]
     Active Substance: NIRAPARIB
     Indication: ENDOMETRIAL CANCER
     Dosage: 200 MG, QD

REACTIONS (2)
  - Malignant neoplasm progression [Unknown]
  - Product use in unapproved indication [Unknown]
